FAERS Safety Report 12688185 (Version 2)
Quarter: 2016Q4

REPORT INFORMATION
  Report Type: Report from Study
  Country: US (occurrence: US)
  Receive Date: 20160826
  Receipt Date: 20161028
  Transmission Date: 20170207
  Serious: Yes (Hospitalization, Other)
  Sender: FDA-Public Use
  Company Number: US-ROCHE-1709241

PATIENT
  Age: 76 Year
  Sex: Female
  Weight: 75.82 kg

DRUGS (15)
  1. ESBRIET [Suspect]
     Active Substance: PIRFENIDONE
     Dosage: 1-2 CAPSULES
     Route: 048
     Dates: start: 20151020, end: 20160825
  2. PRAVASTATIN. [Concomitant]
     Active Substance: PRAVASTATIN
     Indication: BLOOD CHOLESTEROL
     Dosage: ONGOING
     Route: 065
     Dates: start: 2013
  3. PRAVASTATIN. [Concomitant]
     Active Substance: PRAVASTATIN
     Route: 048
  4. ASPIRIN. [Concomitant]
     Active Substance: ASPIRIN
     Route: 048
     Dates: start: 2001
  5. ALBUTEROL. [Concomitant]
     Active Substance: ALBUTEROL
     Indication: INTERSTITIAL LUNG DISEASE
     Route: 045
  6. PANTOPRAZOLE [Concomitant]
     Active Substance: PANTOPRAZOLE SODIUM
     Indication: GASTROOESOPHAGEAL REFLUX DISEASE
     Route: 048
     Dates: start: 2014
  7. PROAIR HFA [Concomitant]
     Active Substance: ALBUTEROL SULFATE
     Indication: INTERSTITIAL LUNG DISEASE
     Dosage: 2 PUFFS PRN
     Route: 045
  8. PROAIR HFA [Concomitant]
     Active Substance: ALBUTEROL SULFATE
     Dosage: 2 PUFFS; ONGOING
     Route: 055
  9. ESBRIET [Suspect]
     Active Substance: PIRFENIDONE
     Indication: INTERSTITIAL LUNG DISEASE
     Dosage: 2 PILLS 3 TIMES A DAY
     Route: 048
  10. HYDROCHLOROTHIAZIDE. [Concomitant]
     Active Substance: HYDROCHLOROTHIAZIDE
     Indication: OEDEMA
     Route: 048
  11. ESBRIET [Suspect]
     Active Substance: PIRFENIDONE
     Indication: IDIOPATHIC PULMONARY FIBROSIS
     Route: 048
     Dates: start: 20151120
  12. ESBRIET [Suspect]
     Active Substance: PIRFENIDONE
     Route: 048
  13. ESBRIET [Suspect]
     Active Substance: PIRFENIDONE
     Dosage: 3 TIMES PER DAY
     Route: 065
     Dates: start: 20160225
  14. ESBRIET [Suspect]
     Active Substance: PIRFENIDONE
     Dosage: 2 CAPSULES 3 TIMES PER DAY
     Route: 048
     Dates: start: 20160101
  15. DILTIAZEM. [Concomitant]
     Active Substance: DILTIAZEM
     Indication: HYPERTENSION
     Route: 048
     Dates: start: 1996

REACTIONS (13)
  - Nausea [Recovered/Resolved with Sequelae]
  - Dizziness [Recovering/Resolving]
  - Vomiting [Unknown]
  - Malaise [Unknown]
  - Hyperhidrosis [Recovered/Resolved with Sequelae]
  - Large intestinal haemorrhage [Unknown]
  - Dizziness [Recovered/Resolved with Sequelae]
  - Body temperature increased [Recovered/Resolved]
  - Headache [Recovering/Resolving]
  - Nausea [Unknown]
  - Colon cancer [Recovering/Resolving]
  - Nausea [Recovering/Resolving]
  - Dizziness [Recovering/Resolving]

NARRATIVE: CASE EVENT DATE: 20151215
